FAERS Safety Report 8158739-0 (Version None)
Quarter: 2012Q1

REPORT INFORMATION
  Report Type: 
  Country: None (occurrence: None)
  Receive Date: 20120223
  Receipt Date: 20120214
  Transmission Date: 20120608
  Serious: Yes (Other)
  Sender: FDA-Public Use
  Company Number: US-US-EMD SERONO, INC.-233122J10USA

PATIENT
  Sex: Female
  Weight: 72 kg

DRUGS (3)
  1. REBIF [Suspect]
     Route: 058
     Dates: start: 20100201, end: 20110401
  2. TRILEPTAL [Concomitant]
     Indication: DYSKINESIA
  3. REBIF [Suspect]
     Indication: RELAPSING-REMITTING MULTIPLE SCLEROSIS
     Route: 058
     Dates: start: 20100118, end: 20100201

REACTIONS (3)
  - BLINDNESS TRANSIENT [None]
  - DYSKINESIA [None]
  - BACK PAIN [None]
